FAERS Safety Report 22340635 (Version 1)
Quarter: 2023Q2

REPORT INFORMATION
  Report Type: Spontaneous
  Country: US (occurrence: None)
  Receive Date: 20230517
  Receipt Date: 20230517
  Transmission Date: 20230722
  Serious: No
  Sender: FDA-Public Use
  Company Number: None

PATIENT
  Sex: Female

DRUGS (1)
  1. RINVOQ [Suspect]
     Active Substance: UPADACITINIB
     Indication: Rheumatoid arthritis
     Dosage: FREQUENCY : DAILY;?
     Route: 048
     Dates: start: 202303

REACTIONS (7)
  - Pain in extremity [None]
  - Pain [None]
  - Drug ineffective [None]
  - Arthralgia [None]
  - Arthritis [None]
  - Rheumatoid arthritis [None]
  - Product substitution issue [None]
